FAERS Safety Report 4731746-3 (Version None)
Quarter: 2005Q3

REPORT INFORMATION
  Report Type: 
  Country: None (occurrence: None)
  Receive Date: 20050719
  Receipt Date: 20050121
  Transmission Date: 20060218
  Serious: Yes (Other)
  Sender: FDA-Public Use
  Company Number: 2005BI001494

PATIENT
  Age: 34 Year
  Sex: Female

DRUGS (6)
  1. AVONEX [Suspect]
     Indication: MULTIPLE SCLEROSIS
     Dosage: 30 UG;QW;IM
     Route: 030
     Dates: start: 19980301, end: 20040101
  2. AVONEX [Suspect]
     Indication: MULTIPLE SCLEROSIS
     Dosage: 30 UG;QW;IM
     Route: 030
     Dates: start: 20040101
  3. LAMICTAL [Concomitant]
  4. SYNTHROID [Concomitant]
  5. MULTI-VITAMIN [Concomitant]
  6. DETROL [Concomitant]

REACTIONS (2)
  - HYPOTHYROIDISM [None]
  - PARTIAL SEIZURES [None]
